FAERS Safety Report 7324469-8 (Version None)
Quarter: 2011Q1

REPORT INFORMATION
  Report Type: 
  Country: None (occurrence: None)
  Receive Date: 20110218
  Receipt Date: 20110210
  Transmission Date: 20110831
  Serious: Yes (Hospitalization, Disabling, Other)
  Sender: FDA-Public Use
  Company Number: 2010SP055002

PATIENT
  Age: 23 Year
  Sex: Female
  Weight: 117.9352 kg

DRUGS (2)
  1. NUVARING [Suspect]
     Indication: CONTRACEPTION
     Dates: start: 20091126, end: 20100301
  2. NUVARING [Suspect]
     Indication: MENSTRUATION IRREGULAR
     Dates: start: 20091126, end: 20100301

REACTIONS (5)
  - PULMONARY EMBOLISM [None]
  - VARICOSE VEIN [None]
  - DYSPNOEA [None]
  - OVARIAN CYST [None]
  - MIGRAINE [None]
